FAERS Safety Report 17522877 (Version 1)
Quarter: 2020Q1

REPORT INFORMATION
  Report Type: Spontaneous
  Country: DE (occurrence: DE)
  Receive Date: 20200311
  Receipt Date: 20200311
  Transmission Date: 20200409
  Serious: Yes (Other)
  Sender: FDA-Public Use
  Company Number: DE-TEVA-2020-DE-1196368

PATIENT
  Age: 36 Year
  Sex: Female
  Weight: 63 kg

DRUGS (2)
  1. LAMOTRIGIN ABZ 100 MG TABLETTEN [Suspect]
     Active Substance: LAMOTRIGINE
     Indication: EPILEPSY
     Dosage: 150MG -0-200MG
     Route: 048
     Dates: start: 20191010, end: 20200102
  2. LAMOTRIGIN AUROBINDO [Suspect]
     Active Substance: LAMOTRIGINE
     Indication: EPILEPSY
     Dosage: 150 MG
     Route: 048
     Dates: start: 20200103, end: 20200119

REACTIONS (1)
  - Urticarial vasculitis [Not Recovered/Not Resolved]

NARRATIVE: CASE EVENT DATE: 201910
